FAERS Safety Report 7390934-0 (Version None)
Quarter: 2011Q2

REPORT INFORMATION
  Report Type: 
  Country: None (occurrence: None)
  Receive Date: 20110404
  Receipt Date: 20110321
  Transmission Date: 20111010
  Serious: Yes (Death, Other)
  Sender: FDA-Public Use
  Company Number: TR-CELGENEUS-161-CCAZA-11032326

PATIENT

DRUGS (1)
  1. AZACITIDINE [Suspect]
     Indication: REFRACTORY ANAEMIA WITH AN EXCESS OF BLASTS
     Route: 050

REACTIONS (9)
  - PNEUMONIA [None]
  - ACUTE MYELOID LEUKAEMIA [None]
  - FEBRILE NEUTROPENIA [None]
  - MYELODYSPLASTIC SYNDROME TRANSFORMATION [None]
  - GASTROINTESTINAL HAEMORRHAGE [None]
  - BLOOD PRODUCT TRANSFUSION DEPENDENT [None]
  - ANAL ABSCESS [None]
  - CARDIAC FAILURE CONGESTIVE [None]
  - ANGINA UNSTABLE [None]
